FAERS Safety Report 14355410 (Version 4)
Quarter: 2023Q4

REPORT INFORMATION
  Report Type: Spontaneous
  Country: US (occurrence: US)
  Receive Date: 20180105
  Receipt Date: 20231130
  Transmission Date: 20240110
  Serious: No
  Sender: FDA-Public Use
  Company Number: US-PFIZER INC-2018003889

PATIENT
  Age: 47 Year
  Sex: Female

DRUGS (22)
  1. XELJANZ XR [Suspect]
     Active Substance: TOFACITINIB CITRATE
     Indication: Rheumatoid arthritis
     Dosage: 11 MG, 1X/DAY
     Route: 048
     Dates: start: 20171207
  2. FLONASE [Concomitant]
     Active Substance: FLUTICASONE PROPIONATE
     Indication: Rheumatoid arthritis
     Dosage: 50 UG, DAILY (1 NASAL SPRAY EACH DAY)
     Route: 045
  3. METHOTREXATE [Concomitant]
     Active Substance: METHOTREXATE
     Indication: Rheumatoid arthritis
     Dosage: 20 MG, WEEKLY [2.5MG 8 TABLETS ON THURSDAY ONCE A WEEK]
  4. FOLIC ACID [Concomitant]
     Active Substance: FOLIC ACID
     Indication: Rheumatoid arthritis
     Dosage: 1 MG, 1X/DAY (1 TABLET)
     Route: 048
  5. MELOXICAM [Concomitant]
     Active Substance: MELOXICAM
     Indication: Rheumatoid arthritis
     Dosage: 15 MG, 1X/DAY
     Route: 048
  6. PREDNISONE [Concomitant]
     Active Substance: PREDNISONE
     Indication: Rheumatoid arthritis
     Dosage: 10 MG, AS NEEDED (TAKE AN EXTRA TABLET A DAY AS NEEDED]
  7. TIZANIDINE [Concomitant]
     Active Substance: TIZANIDINE
     Indication: Rheumatoid arthritis
     Dosage: 8 MG, 1X/DAY, (4 MG 2 TABLETS)
     Route: 048
  8. OMEPRAZOLE [Concomitant]
     Active Substance: OMEPRAZOLE
     Indication: Rheumatoid arthritis
     Dosage: 40 MG, 1X/DAY, (1 CAPSULE)
     Route: 048
  9. ZANTAC [Concomitant]
     Active Substance: RANITIDINE HYDROCHLORIDE
     Indication: Rheumatoid arthritis
     Dosage: 150 MG, 1X/DAY, (1 TABLET)
  10. FERROUS SULFATE [Concomitant]
     Active Substance: FERROUS SULFATE
     Indication: Rheumatoid arthritis
     Dosage: 325 MG, 1X/DAY (1 TABLET)
  11. NORCO [Concomitant]
     Active Substance: ACETAMINOPHEN\HYDROCODONE BITARTRATE
     Indication: Rheumatoid arthritis
     Dosage: UNK, AS NEEDED (7.5- 325 MG- 1 TABLET)
  12. LIDOCAINE [Concomitant]
     Active Substance: LIDOCAINE
     Indication: Rheumatoid arthritis
     Dosage: UNK UNK, AS NEEDED [LIDOCAINE 5%; 1 APPLICATION TO AFFECTED AREA]
  13. ALPRAZOLAM [Concomitant]
     Active Substance: ALPRAZOLAM
     Indication: Rheumatoid arthritis
     Dosage: 0.5 MG, AS NEEDED [1 TABLET ORALLY PRN PRIOR TO LAB DRAW]
     Route: 048
  14. CETIRIZINE HCL [Concomitant]
     Active Substance: CETIRIZINE HYDROCHLORIDE
     Indication: Rheumatoid arthritis
     Dosage: 10 MG, AS NEEDED (1 TABLET)
     Route: 048
  15. DOCUSATE SODIUM [Concomitant]
     Active Substance: DOCUSATE SODIUM
     Indication: Rheumatoid arthritis
     Dosage: 100 MG, AS NEEDED, (1 CAPSULE)
  16. BC (ASPIRIN\CAFFEINE) [Concomitant]
     Active Substance: ASPIRIN\CAFFEINE
     Indication: Rheumatoid arthritis
     Dosage: UNK, 4X/DAY [1000- 65 MG 1 PACKET ORALLY EVERY 6 HRS]
     Route: 048
  17. ACETAMINOPHEN\HYDROCODONE [Concomitant]
     Active Substance: ACETAMINOPHEN\HYDROCODONE
     Dosage: UNK
  18. LATANOPROST [Concomitant]
     Active Substance: LATANOPROST
     Dosage: UNK
  19. AMLODIPINE BESYLATE [Concomitant]
     Active Substance: AMLODIPINE BESYLATE
     Dosage: UNK
  20. NARCAN [Concomitant]
     Active Substance: NALOXONE HYDROCHLORIDE
     Dosage: UNK
  21. VITAMIN D3 [Concomitant]
     Active Substance: CHOLECALCIFEROL
     Dosage: UNK
  22. BROMFENAC/PREDNISOLONE [Concomitant]
     Dosage: UNK

REACTIONS (5)
  - Ingrown hair [Recovered/Resolved]
  - Localised infection [Recovered/Resolved]
  - Herpes zoster [Recovered/Resolved]
  - Product dose omission issue [Unknown]
  - Pain [Unknown]

NARRATIVE: CASE EVENT DATE: 20180101
